FAERS Safety Report 5845734-7 (Version None)
Quarter: 2008Q3

REPORT INFORMATION
  Report Type: 
  Country: None (occurrence: None)
  Receive Date: 20080814
  Receipt Date: 20080808
  Transmission Date: 20090109
  Serious: Yes (Other)
  Sender: FDA-Public Use
  Company Number: PHHY2008JP11056

PATIENT
  Sex: Male

DRUGS (4)
  1. DIOVAN [Suspect]
     Indication: HYPERTENSION
     Dosage: 80 MG, QD
     Route: 048
     Dates: start: 20080404, end: 20080501
  2. DIOVAN [Suspect]
     Dosage: 160 MG, QD
     Route: 048
     Dates: start: 20080502, end: 20080605
  3. DIOVAN [Suspect]
     Dosage: 80 MG, QD
     Route: 048
     Dates: start: 20080606, end: 20080704
  4. LIPITOR [Concomitant]
     Dosage: 5 MG
     Route: 048
     Dates: start: 20080404

REACTIONS (4)
  - GAIT DISTURBANCE [None]
  - HYPOTENSION [None]
  - INTERMITTENT CLAUDICATION [None]
  - RAYNAUD'S PHENOMENON [None]
